FAERS Safety Report 22361418 (Version 1)
Quarter: 2023Q2

REPORT INFORMATION
  Report Type: Spontaneous
  Country: US (occurrence: None)
  Receive Date: 20230523
  Receipt Date: 20230523
  Transmission Date: 20230722
  Serious: Yes (Hospitalization)
  Sender: FDA-Public Use
  Company Number: None

PATIENT
  Age: 78 Year
  Sex: Female
  Weight: 80.69 kg

DRUGS (27)
  1. TEMOZOLOMIDE [Suspect]
     Active Substance: TEMOZOLOMIDE
     Indication: Brain neoplasm malignant
  2. TEMOZOLOMIDE [Suspect]
     Active Substance: TEMOZOLOMIDE
  3. ALBUTEROL [Concomitant]
     Active Substance: ALBUTEROL
  4. ANASTROZOLE [Concomitant]
     Active Substance: ANASTROZOLE
  5. BENZONATATE [Concomitant]
     Active Substance: BENZONATATE
  6. BETAMETHASONE [Concomitant]
     Active Substance: BETAMETHASONE
  7. BIOTIN [Concomitant]
     Active Substance: BIOTIN
  8. CALCIUM CITRATE + D3 MAX [Concomitant]
  9. CINNAMON [Concomitant]
     Active Substance: CINNAMON
  10. DEXAMETHASONE [Concomitant]
     Active Substance: DEXAMETHASONE
  11. FEXOFENADINE [Concomitant]
     Active Substance: FEXOFENADINE HYDROCHLORIDE
  12. FLUTICASONE [Concomitant]
     Active Substance: FLUTICASONE
  13. LEVETIRACETAM [Concomitant]
     Active Substance: LEVETIRACETAM
  14. LIDOCAINE [Concomitant]
     Active Substance: LIDOCAINE
  15. METOPROLOL [Concomitant]
     Active Substance: METOPROLOL
  16. MONTELUKAST [Concomitant]
     Active Substance: MONTELUKAST SODIUM
  17. OMEPRAZOLE [Concomitant]
     Active Substance: OMEPRAZOLE
  18. CHONDROITIN SULFATE A\GLUCOSAMINE [Concomitant]
     Active Substance: CHONDROITIN SULFATE A\GLUCOSAMINE
  19. OXYCODONE [Concomitant]
     Active Substance: OXYCODONE
  20. POTASSIUM CHLORIDE [Concomitant]
     Active Substance: POTASSIUM CHLORIDE
  21. PRAVASTATIN [Concomitant]
     Active Substance: PRAVASTATIN
  22. PULMICORT TURBUHALER [Concomitant]
     Active Substance: BUDESONIDE
  23. TIZANIDINE [Concomitant]
     Active Substance: TIZANIDINE
  24. TRAZODONE [Concomitant]
     Active Substance: TRAZODONE HYDROCHLORIDE
  25. HYDROCHLOROTHIAZIDE\TRIAMTERENE [Concomitant]
     Active Substance: HYDROCHLOROTHIAZIDE\TRIAMTERENE
  26. VICKS [Concomitant]
  27. VITAMIN D3 [Concomitant]
     Active Substance: CHOLECALCIFEROL

REACTIONS (3)
  - Fall [None]
  - Therapy interrupted [None]
  - Spinal operation [None]

NARRATIVE: CASE EVENT DATE: 20230515
